FAERS Safety Report 12424306 (Version 2)
Quarter: 2017Q2

REPORT INFORMATION
  Report Type: Spontaneous
  Country: US (occurrence: US)
  Receive Date: 20160601
  Receipt Date: 20170602
  Transmission Date: 20170830
  Serious: No
  Sender: FDA-Public Use
  Company Number: US-NOVEN PHARMACEUTICALS, INC.-US2015001209

PATIENT

DRUGS (11)
  1. INTUNIV [Concomitant]
     Active Substance: GUANFACINE HYDROCHLORIDE
     Dosage: 3 MG, UNK
  2. RISPERIDONE. [Concomitant]
     Active Substance: RISPERIDONE
     Dosage: 1 MG, TID
  3. OXCARBAZEPINE. [Concomitant]
     Active Substance: OXCARBAZEPINE
     Dosage: 150 MG, UNK
  4. DAYTRANA [Suspect]
     Active Substance: METHYLPHENIDATE
     Indication: ATTENTION DEFICIT/HYPERACTIVITY DISORDER
     Dosage: 20 MG, UNKNOWN
     Route: 062
     Dates: start: 2010
  5. DAYTRANA [Suspect]
     Active Substance: METHYLPHENIDATE
     Dosage: 45 MG (APPLYING TWO PATCHES (30 MG +15 MG) TOGETHER), UNK
     Route: 062
     Dates: start: 201607, end: 2016
  6. CONCERTA [Concomitant]
     Active Substance: METHYLPHENIDATE HYDROCHLORIDE
  7. DAYTRANA [Suspect]
     Active Substance: METHYLPHENIDATE
     Dosage: 30 MG AND 10 MG TOGETHER, UNKNOWN
     Route: 062
  8. FOCALIN [Concomitant]
     Active Substance: DEXMETHYLPHENIDATE HYDROCHLORIDE
     Dosage: 10 MG, BID
  9. DAYTRANA [Suspect]
     Active Substance: METHYLPHENIDATE
     Dosage: APPLYING THREE PATCHES (20 MG + 15MG + 10 MG EACH) TOGETHER TO MAKE A DOSE OF 45 MG, UNK
     Route: 062
     Dates: start: 2013, end: 201607
  10. DAYTRANA [Suspect]
     Active Substance: METHYLPHENIDATE
     Dosage: 45 MG (APPLYING THREE, 15 MG PATCHES TOGETHER), UNK
     Route: 062
     Dates: start: 2016
  11. GUANFACINE. [Concomitant]
     Active Substance: GUANFACINE

REACTIONS (4)
  - Prescribed overdose [Not Recovered/Not Resolved]
  - Off label use [Unknown]
  - Wrong technique in product usage process [Not Recovered/Not Resolved]
  - No adverse event [Unknown]
